FAERS Safety Report 6027374-2 (Version None)
Quarter: 2009Q1

REPORT INFORMATION
  Report Type: 
  Country: None (occurrence: None)
  Receive Date: 20090105
  Receipt Date: 20081226
  Transmission Date: 20090719
  Serious: Yes (Hospitalization)
  Sender: FDA-Public Use
  Company Number: B0552419A

PATIENT
  Age: 47 Year
  Sex: Female

DRUGS (3)
  1. SAWACILLIN [Suspect]
     Indication: HELICOBACTER INFECTION
     Dosage: 750MG TWICE PER DAY
     Route: 048
     Dates: start: 20081003, end: 20081004
  2. RABEPRAZOLE SODIUM [Suspect]
     Indication: HELICOBACTER INFECTION
     Dosage: 10MG TWICE PER DAY
     Route: 048
     Dates: start: 20081003, end: 20081004
  3. CLARITHROMYCIN [Concomitant]
     Dosage: 200MG TWICE PER DAY
     Dates: start: 20081003, end: 20081004

REACTIONS (4)
  - BLISTER [None]
  - ERYTHEMA MULTIFORME [None]
  - GENERALISED OEDEMA [None]
  - ILL-DEFINED DISORDER [None]
